FAERS Safety Report 15838555 (Version 1)
Quarter: 2019Q1

REPORT INFORMATION
  Report Type: Spontaneous
  Country: FR (occurrence: FR)
  Receive Date: 20190117
  Receipt Date: 20190117
  Transmission Date: 20190417
  Serious: Yes (Other)
  Sender: FDA-Public Use
  Company Number: FR-PFIZER INC-2019024683

PATIENT
  Age: 71 Year
  Sex: Female

DRUGS (3)
  1. LEVOFLOXACIN. [Suspect]
     Active Substance: LEVOFLOXACIN
     Dates: start: 201812
  2. AMOXICILLIN. [Concomitant]
     Active Substance: AMOXICILLIN
     Indication: ANTIBIOTIC THERAPY
     Dates: start: 201812
  3. PREVISCAN [FLUINDIONE] [Interacting]
     Active Substance: FLUINDIONE

REACTIONS (4)
  - Drug interaction [Recovered/Resolved]
  - Vessel puncture site haemorrhage [Recovered/Resolved]
  - Mouth haemorrhage [Recovered/Resolved]
  - International normalised ratio increased [Unknown]

NARRATIVE: CASE EVENT DATE: 201812
